FAERS Safety Report 12253048 (Version 3)
Quarter: 2016Q2

REPORT INFORMATION
  Report Type: Spontaneous
  Country: ZA (occurrence: ZA)
  Receive Date: 20160411
  Receipt Date: 20160614
  Transmission Date: 20160815
  Serious: Yes (Other)
  Sender: FDA-Public Use
  Company Number: ZA-CTI_01892_2016

PATIENT
  Sex: Male

DRUGS (2)
  1. CUROSURF [Suspect]
     Active Substance: PORACTANT ALFA
     Indication: NEONATAL RESPIRATORY DISTRESS SYNDROME
     Route: 007
     Dates: start: 20160330, end: 20160330
  2. CUROSURF [Suspect]
     Active Substance: PORACTANT ALFA
     Route: 007
     Dates: start: 20160330, end: 20160330

REACTIONS (4)
  - Product quality issue [Unknown]
  - Cyanosis [Recovered/Resolved]
  - Endotracheal intubation complication [Recovered/Resolved]
  - Wrong technique in product usage process [Unknown]

NARRATIVE: CASE EVENT DATE: 20160330
